FAERS Safety Report 10244694 (Version 1)
Quarter: 2014Q2

REPORT INFORMATION
  Report Type: Spontaneous
  Country: CN (occurrence: CN)
  Receive Date: 20140618
  Receipt Date: 20140618
  Transmission Date: 20141212
  Serious: Yes (Other)
  Sender: FDA-Public Use
  Company Number: CN-GLAXOSMITHKLINE-B1005025A

PATIENT
  Sex: Female
  Weight: 49 kg

DRUGS (2)
  1. LAMICTAL [Suspect]
     Indication: EPILEPSY
     Dosage: 25MG PER DAY
     Route: 048
     Dates: start: 20131122, end: 20131208
  2. DEPAKINE [Suspect]
     Indication: EPILEPSY
     Dosage: .5G PER DAY
     Route: 048
     Dates: start: 20121201, end: 20131208

REACTIONS (26)
  - Hepatocellular injury [Not Recovered/Not Resolved]
  - Liver injury [Not Recovered/Not Resolved]
  - Rash generalised [Not Recovered/Not Resolved]
  - Oral disorder [Not Recovered/Not Resolved]
  - Eyelid oedema [Not Recovered/Not Resolved]
  - Jaundice [Not Recovered/Not Resolved]
  - Pyrexia [Not Recovered/Not Resolved]
  - Upper respiratory tract infection [Not Recovered/Not Resolved]
  - Papule [Not Recovered/Not Resolved]
  - Rash vesicular [Not Recovered/Not Resolved]
  - Dermatitis [Not Recovered/Not Resolved]
  - Macule [Not Recovered/Not Resolved]
  - Rash macular [Not Recovered/Not Resolved]
  - Ocular icterus [Not Recovered/Not Resolved]
  - Blister [Not Recovered/Not Resolved]
  - Eye discharge [Not Recovered/Not Resolved]
  - Lip ulceration [Not Recovered/Not Resolved]
  - Lip erosion [Not Recovered/Not Resolved]
  - Scar [Not Recovered/Not Resolved]
  - Yellow skin [Not Recovered/Not Resolved]
  - Erythema [Not Recovered/Not Resolved]
  - Transaminases decreased [Not Recovered/Not Resolved]
  - Blood bilirubin increased [Not Recovered/Not Resolved]
  - Drug hypersensitivity [Not Recovered/Not Resolved]
  - Hepatic function abnormal [Not Recovered/Not Resolved]
  - Concomitant disease aggravated [Not Recovered/Not Resolved]
